FAERS Safety Report 6031792-6 (Version None)
Quarter: 2008Q4

REPORT INFORMATION
  Report Type: 
  Country: None (occurrence: None)
  Receive Date: 20081224
  Receipt Date: 20081015
  Transmission Date: 20090506
  Serious: No
  Sender: FDA-Public Use
  Company Number: 2008PV036566

PATIENT
  Age: 74 Year
  Sex: Male

DRUGS (4)
  1. SYMLIN [Suspect]
     Indication: TYPE 2 DIABETES MELLITUS
     Dosage: 30 MCG; BID; SC, 15 MCG; BID; SC
     Route: 058
     Dates: start: 20080829, end: 20081001
  2. SYMLIN [Suspect]
     Indication: TYPE 2 DIABETES MELLITUS
     Dosage: 30 MCG; BID; SC, 15 MCG; BID; SC
     Route: 058
     Dates: start: 20081001
  3. NOVOLOG [Concomitant]
  4. LANTUS [Concomitant]

REACTIONS (4)
  - DRUG INEFFECTIVE [None]
  - ERYTHEMA [None]
  - HOT FLUSH [None]
  - PRURITUS [None]
